FAERS Safety Report 9020528 (Version 1)
Quarter: 2013Q1

REPORT INFORMATION
  Report Type: Spontaneous
  Country: US (occurrence: US)
  Receive Date: 20130119
  Receipt Date: 20130119
  Transmission Date: 20140127
  Serious: No
  Sender: FDA-Public Use
  Company Number: US-ALLERGAN-1207655US

PATIENT
  Sex: 0

DRUGS (2)
  1. BOTOX? [Suspect]
     Indication: TORTICOLLIS
     Dosage: 200U
     Dates: start: 201205, end: 201205
  2. BOTOX? [Suspect]
     Indication: HEADACHE

REACTIONS (2)
  - Dysphagia [Unknown]
  - Diplopia [Unknown]
